FAERS Safety Report 4777734-2 (Version None)
Quarter: 2005Q3

REPORT INFORMATION
  Report Type: 
  Country: None (occurrence: None)
  Receive Date: 20050921
  Receipt Date: 20050901
  Transmission Date: 20060218
  Serious: Yes (Hospitalization)
  Sender: FDA-Public Use
  Company Number: US_0509121479

PATIENT
  Sex: Male
  Weight: 80 kg

DRUGS (13)
  1. CYMBALTA [Suspect]
     Indication: NEUROPATHIC PAIN
     Dosage: 60 MG DAY
     Dates: start: 20050419, end: 20050731
  2. TEGRETOL [Concomitant]
  3. PLAVIX [Concomitant]
  4. ACETYLSALICYLIC ACID SRT [Concomitant]
  5. PRILOSEC [Concomitant]
  6. PROSCAR [Concomitant]
  7. ALLEGRA [Concomitant]
  8. RHINOCORT [Concomitant]
  9. FLUTICASONE PROPIONATE W/SALMETEROL [Concomitant]
  10. ACCUPRIL [Concomitant]
  11. VERAPAMIL [Concomitant]
  12. MEVACOR [Concomitant]
  13. CROMOLYN (CROMOGLICIC ACID) [Concomitant]

REACTIONS (4)
  - CHEST PAIN [None]
  - CHRONIC OBSTRUCTIVE PULMONARY DISEASE [None]
  - CORONARY ARTERIAL STENT INSERTION [None]
  - THERAPY NON-RESPONDER [None]
